FAERS Safety Report 10576424 (Version 1)
Quarter: 2014Q4

REPORT INFORMATION
  Report Type: Spontaneous
  Country: JP (occurrence: JP)
  Receive Date: 20141111
  Receipt Date: 20141111
  Transmission Date: 20150529
  Serious: Yes (Other)
  Sender: FDA-Public Use
  Company Number: JP-ASTRAZENECA-2014SE84696

PATIENT

DRUGS (2)
  1. ANAPEINE [Suspect]
     Active Substance: ROPIVACAINE HYDROCHLORIDE
     Dosage: 2MG/ML, UNKNOWN FREQUENCY
     Route: 065
  2. OTHER ANTIBIOTIC PREPARATIONS (INCLUDING MIXED ANTIBIOTIC PREPARATIONS [Concomitant]
     Dosage: DOSE UNKNOWN
     Route: 065

REACTIONS (1)
  - Shock [Recovered/Resolved]
